FAERS Safety Report 9227756 (Version 2)
Quarter: 2013Q2

REPORT INFORMATION
  Report Type: Spontaneous
  Country: US (occurrence: US)
  Receive Date: 20130412
  Receipt Date: 20130509
  Transmission Date: 20140414
  Serious: Yes (Hospitalization, Other)
  Sender: FDA-Public Use
  Company Number: US-SANOFI-AVENTIS-2013SA037219

PATIENT
  Age: 65 Year
  Sex: Female
  Weight: 97.52 kg

DRUGS (5)
  1. LANTUS [Suspect]
     Indication: TYPE 2 DIABETES MELLITUS
     Dosage: START DATE: FOUR YEARS AGO DOSE:37 UNIT(S)
     Route: 051
     Dates: start: 2009, end: 2013
  2. NOVOLOG [Concomitant]
     Dosage: DOSE: SLIDING SCALE?START DATE: 3-4 YEARS
  3. LISINOPRIL [Concomitant]
     Dosage: START DATE: 3-4 YEARS
  4. CITALOPRAM [Concomitant]
     Dosage: START DATE: 2 YEARS
  5. ALENE [Concomitant]
     Dosage: 2 TABLETS AS NEEDED
     Route: 048

REACTIONS (2)
  - Biliary colic [Recovered/Resolved]
  - Hepatic cirrhosis [Not Recovered/Not Resolved]
